FAERS Safety Report 22250607 (Version 3)
Quarter: 2025Q1

REPORT INFORMATION
  Report Type: Spontaneous
  Country: US (occurrence: US)
  Receive Date: 20230425
  Receipt Date: 20250121
  Transmission Date: 20250408
  Serious: Yes (Other)
  Sender: PFIZER
  Company Number: US-PFIZER INC-202300165523

PATIENT
  Age: 72 Year
  Sex: Female
  Weight: 68.04 kg

DRUGS (1)
  1. IBRANCE [Suspect]
     Active Substance: PALBOCICLIB
     Indication: Breast cancer female
     Dates: start: 201911

REACTIONS (5)
  - Osteomyelitis [Unknown]
  - Neoplasm progression [Unknown]
  - Body height decreased [Unknown]
  - White blood cell count decreased [Unknown]
  - Illness [Unknown]
